FAERS Safety Report 13933633 (Version 2)
Quarter: 2017Q3

REPORT INFORMATION
  Report Type: Spontaneous
  Country: US (occurrence: US)
  Receive Date: 20170904
  Receipt Date: 20170920
  Transmission Date: 20171127
  Serious: Yes (Hospitalization)
  Sender: FDA-Public Use
  Company Number: US-BAUSCH-BL-2017-025125

PATIENT
  Age: 62 Year
  Sex: Female
  Weight: 61.29 kg

DRUGS (4)
  1. PEPCID [Suspect]
     Active Substance: FAMOTIDINE
     Indication: DYSPEPSIA
  2. PEPCID [Suspect]
     Active Substance: FAMOTIDINE
     Indication: GASTROOESOPHAGEAL REFLUX DISEASE
     Dosage: STARTED AROUND THREE YEARS AGO
     Route: 048
     Dates: start: 2014, end: 201708
  3. ASPIRIN. [Concomitant]
     Active Substance: ASPIRIN
     Indication: CARDIAC DISORDER
     Route: 048
  4. ATORVASTATIN [Concomitant]
     Active Substance: ATORVASTATIN
     Indication: BLOOD CHOLESTEROL INCREASED
     Dosage: DAILY
     Route: 048

REACTIONS (2)
  - Nephropathy [Recovering/Resolving]
  - Weight increased [Recovered/Resolved]

NARRATIVE: CASE EVENT DATE: 20170810
